FAERS Safety Report 24546786 (Version 1)
Quarter: 2024Q4

REPORT INFORMATION
  Report Type: Spontaneous
  Country: US (occurrence: US)
  Receive Date: 20241024
  Receipt Date: 20241024
  Transmission Date: 20250115
  Serious: No
  Sender: BAUSCH AND LOMB
  Company Number: US-BAUSCHBL-2024BNL036038

PATIENT

DRUGS (1)
  1. XIIDRA [Suspect]
     Active Substance: LIFITEGRAST
     Indication: Dry eye
     Route: 065

REACTIONS (3)
  - Pain [Unknown]
  - Eye disorder [Unknown]
  - Expired product administered [Unknown]

NARRATIVE: CASE EVENT DATE: 20241008
